FAERS Safety Report 10673049 (Version 2)
Quarter: 2015Q1

REPORT INFORMATION
  Report Type: Report from Study
  Country: US (occurrence: US)
  Receive Date: 20141223
  Receipt Date: 20150116
  Transmission Date: 20150720
  Serious: Yes (Death)
  Sender: FDA-Public Use
  Company Number: US-AMGEN-USASL2014098642

PATIENT
  Age: 86 Year
  Sex: Female

DRUGS (2)
  1. PROLIA [Suspect]
     Active Substance: DENOSUMAB
     Indication: CHRONIC KIDNEY DISEASE
  2. PROLIA [Suspect]
     Active Substance: DENOSUMAB
     Indication: OSTEOPOROSIS
     Dosage: UNK
     Route: 065

REACTIONS (5)
  - Acute respiratory distress syndrome [Fatal]
  - Chronic kidney disease [Fatal]
  - Hypoxia [Fatal]
  - Chronic obstructive pulmonary disease [Fatal]
  - Atrial fibrillation [Fatal]
